FAERS Safety Report 4658360-2 (Version None)
Quarter: 2005Q2

REPORT INFORMATION
  Report Type: 
  Country: None (occurrence: None)
  Receive Date: 20050511
  Receipt Date: 20050128
  Transmission Date: 20051028
  Serious: Yes (Disabling)
  Sender: FDA-Public Use
  Company Number: US-BRISTOL-MYERS SQUIBB COMPANY-12842233

PATIENT
  Age: 72 Year
  Sex: Male

DRUGS (5)
  1. ERBITUX [Suspect]
     Indication: COLORECTAL CANCER METASTATIC
     Dosage: LOADING DOSE.
     Route: 042
     Dates: start: 20050121
  2. BENADRYL [Concomitant]
     Indication: PREMEDICATION
     Dates: start: 20050121
  3. TYLENOL [Concomitant]
     Indication: PREMEDICATION
     Dates: start: 20050121
  4. ANZEMET [Concomitant]
     Route: 042
  5. IRINOTECAN [Concomitant]

REACTIONS (5)
  - CHILLS [None]
  - DISORIENTATION [None]
  - LIP BLISTER [None]
  - RASH [None]
  - STOMATITIS [None]
